FAERS Safety Report 8473867-8 (Version None)
Quarter: 2012Q2

REPORT INFORMATION
  Report Type: 
  Country: None (occurrence: None)
  Receive Date: 20120628
  Receipt Date: 20120525
  Transmission Date: 20120825
  Serious: Yes (Other)
  Sender: FDA-Public Use
  Company Number: US-MYLANLABS-2012S1000241

PATIENT
  Age: 53 Year
  Sex: Female

DRUGS (13)
  1. DEPO-PROVERA [Concomitant]
     Dosage: EVERY 12 WEEKS
  2. DEPAKOTE [Concomitant]
  3. FOSAMAX [Concomitant]
  4. CLOZAPINE [Suspect]
     Route: 048
     Dates: end: 20120503
  5. COLACE [Concomitant]
  6. CALCIUM [Concomitant]
  7. POTASSIUM CHLORIDE [Concomitant]
  8. ALTACE [Concomitant]
  9. COGENTIN [Concomitant]
  10. SEROQUEL [Concomitant]
  11. CLOZAPINE [Suspect]
     Indication: SCHIZOPHRENIA
     Route: 048
     Dates: end: 20120503
  12. LASIX [Concomitant]
  13. FELODIPINE [Concomitant]

REACTIONS (1)
  - GRANULOCYTOPENIA [None]
